FAERS Safety Report 7528105-7 (Version None)
Quarter: 2011Q2

REPORT INFORMATION
  Report Type: 
  Country: None (occurrence: None)
  Receive Date: 20110531
  Receipt Date: 20110211
  Transmission Date: 20111010
  Serious: Yes (Hospitalization, Disabling, Other)
  Sender: FDA-Public Use
  Company Number: HA11-098-AE

PATIENT
  Age: 66 Year
  Sex: Male

DRUGS (1)
  1. SMZ/TMP TABLETS, USP 800 MG/ 160 MG (AMEAL) [Suspect]
     Indication: URINARY TRACT INFECTION
     Dosage: ONE DOSE
     Dates: start: 20091012

REACTIONS (21)
  - BURNING SENSATION [None]
  - SEPTIC SHOCK [None]
  - CARDIAC FAILURE [None]
  - WEIGHT DECREASED [None]
  - HALLUCINATION [None]
  - HYPOAESTHESIA ORAL [None]
  - BALANCE DISORDER [None]
  - AGEUSIA [None]
  - ABDOMINAL PAIN [None]
  - HYPERHIDROSIS [None]
  - RENAL FAILURE [None]
  - BLINDNESS [None]
  - DISCOMFORT [None]
  - DIABETES MELLITUS [None]
  - DECREASED APPETITE [None]
  - STEVENS-JOHNSON SYNDROME [None]
  - HYPOTENSION [None]
  - BEDRIDDEN [None]
  - UROSEPSIS [None]
  - TOXIC EPIDERMAL NECROLYSIS [None]
  - ALOPECIA [None]
